FAERS Safety Report 12612850 (Version 2)
Quarter: 2016Q3

REPORT INFORMATION
  Report Type: Spontaneous
  Country: US (occurrence: US)
  Receive Date: 20160802
  Receipt Date: 20160804
  Transmission Date: 20161109
  Serious: Yes (Death, Hospitalization, Other)
  Sender: FDA-Public Use
  Company Number: US-JNJFOC-20160720141

PATIENT
  Age: 21 Year
  Sex: Female
  Weight: 46 kg

DRUGS (5)
  1. TYLENOL PM [Suspect]
     Active Substance: ACETAMINOPHEN\DIPHENHYDRAMINE
     Indication: BACK PAIN
     Dosage: 6000 MG, TWO DAYS (HANDFUL 2 DAYS)
     Route: 065
     Dates: start: 200302, end: 20030219
  2. TYLENOL PM [Suspect]
     Active Substance: ACETAMINOPHEN\DIPHENHYDRAMINE
     Indication: CHEST PAIN
     Dosage: 6000 MG, TWO DAYS (HANDFUL 2 DAYS)
     Route: 065
     Dates: start: 200302, end: 20030219
  3. TYLENOL PM [Suspect]
     Active Substance: ACETAMINOPHEN\DIPHENHYDRAMINE
     Indication: BACK PAIN
     Dosage: AT NIGHT
     Route: 065
  4. ETHANOL [Suspect]
     Active Substance: ALCOHOL
     Indication: PRODUCT USED FOR UNKNOWN INDICATION
     Dosage: AVERAGE GRAM OF ETHANOL PER DAY: 120 GM/DAY
     Route: 048
  5. TYLENOL PM [Suspect]
     Active Substance: ACETAMINOPHEN\DIPHENHYDRAMINE
     Indication: CHEST PAIN
     Dosage: AT NIGHT
     Route: 065

REACTIONS (8)
  - Hypothermia [Unknown]
  - Drug administration error [Unknown]
  - Acute kidney injury [Unknown]
  - Brain oedema [Fatal]
  - Pleural effusion [Unknown]
  - Suicide attempt [Fatal]
  - Acute hepatic failure [Fatal]
  - Intentional overdose [Fatal]

NARRATIVE: CASE EVENT DATE: 200302
